FAERS Safety Report 6287645-1 (Version None)
Quarter: 2009Q3

REPORT INFORMATION
  Report Type: 
  Country: None (occurrence: None)
  Receive Date: 20090727
  Receipt Date: 20090727
  Transmission Date: 20100115
  Serious: No
  Sender: FDA-Public Use
  Company Number: None

PATIENT
  Age: 50 Year
  Sex: Male

DRUGS (6)
  1. VIREAD [Suspect]
  2. TRUVADA [Suspect]
     Dates: end: 20070817
  3. ISENTRESS [Suspect]
     Dates: end: 20070820
  4. BACTRIM [Concomitant]
  5. SAW PALMETTO [Concomitant]
  6. PYGEUM AFRICAN HERB [Concomitant]

REACTIONS (9)
  - ANXIETY [None]
  - DRUG INTERACTION [None]
  - DRUG TOXICITY [None]
  - HEPATIC STEATOSIS [None]
  - INSOMNIA [None]
  - LIVER INJURY [None]
  - MITOCHONDRIAL TOXICITY [None]
  - PHLEBITIS [None]
  - STAPHYLOCOCCAL BACTERAEMIA [None]
